FAERS Safety Report 6939672-6 (Version None)
Quarter: 2010Q3

REPORT INFORMATION
  Report Type: 
  Country: None (occurrence: None)
  Receive Date: 20100825
  Receipt Date: 20100818
  Transmission Date: 20110219
  Serious: Yes (Hospitalization)
  Sender: FDA-Public Use
  Company Number: US-BIOGENIDEC-2010BI023903

PATIENT
  Age: 51 Year
  Sex: Female

DRUGS (2)
  1. AVONEX [Suspect]
     Indication: MULTIPLE SCLEROSIS
     Route: 030
     Dates: start: 19990129, end: 20030701
  2. AVONEX [Suspect]
     Route: 030
     Dates: start: 20040201

REACTIONS (3)
  - CONSTIPATION [None]
  - FATIGUE [None]
  - INTESTINAL OBSTRUCTION [None]
